FAERS Safety Report 22090699 (Version 1)
Quarter: 2023Q1

REPORT INFORMATION
  Report Type: Spontaneous
  Country: US (occurrence: US)
  Receive Date: 20230313
  Receipt Date: 20230313
  Transmission Date: 20230417
  Serious: No
  Sender: FDA-Public Use
  Company Number: US-APOTEX-2022AP017656

PATIENT
  Age: 20 Year
  Sex: Male

DRUGS (5)
  1. CARBAMAZEPINE [Suspect]
     Active Substance: CARBAMAZEPINE
     Indication: Tic
     Dosage: UNK
     Route: 065
  2. CARBAMAZEPINE [Suspect]
     Active Substance: CARBAMAZEPINE
     Indication: Dyskinesia
  3. CLONIDINE [Suspect]
     Active Substance: CLONIDINE
     Indication: Tic
     Dosage: UNK
     Route: 065
  4. GUANFACINE [Suspect]
     Active Substance: GUANFACINE
     Indication: Tic
     Dosage: UNK
     Route: 065
  5. TOPIRAMATE [Suspect]
     Active Substance: TOPIRAMATE
     Indication: Tic
     Dosage: UNK
     Route: 065

REACTIONS (2)
  - Altered pitch perception [Recovered/Resolved]
  - Therapy non-responder [Unknown]
